FAERS Safety Report 4658150-0 (Version None)
Quarter: 2005Q2

REPORT INFORMATION
  Report Type: 
  Country: None (occurrence: None)
  Receive Date: 20050509
  Receipt Date: 20050425
  Transmission Date: 20051028
  Serious: Yes (Other)
  Sender: FDA-Public Use
  Company Number: 2005065440

PATIENT
  Age: 93 Year
  Sex: Female
  Weight: 77.1115 kg

DRUGS (2)
  1. BEXTRA [Suspect]
     Indication: BONE PAIN
     Dosage: 5 MG, ORAL
     Route: 048
     Dates: end: 20050101
  2. ATENOLOL [Concomitant]

REACTIONS (5)
  - BODY HEIGHT DECREASED [None]
  - DEMENTIA ALZHEIMER'S TYPE [None]
  - DRUG INEFFECTIVE [None]
  - HERNIA [None]
  - PAIN IN EXTREMITY [None]
